FAERS Safety Report 9242908 (Version 1)
Quarter: 2013Q2

REPORT INFORMATION
  Report Type: Spontaneous
  Country: US (occurrence: US)
  Receive Date: 20130419
  Receipt Date: 20130419
  Transmission Date: 20140414
  Serious: Yes (Hospitalization)
  Sender: FDA-Public Use
  Company Number: US-MYLANLABS-2013S1008280

PATIENT
  Sex: Male

DRUGS (1)
  1. LEVETIRACETAM TABLETS [Suspect]

REACTIONS (3)
  - Convulsion [Recovered/Resolved]
  - Blood glucose decreased [Recovered/Resolved]
  - Headache [Not Recovered/Not Resolved]
